FAERS Safety Report 19235740 (Version 2)
Quarter: 2021Q4

REPORT INFORMATION
  Report Type: Spontaneous
  Country: US (occurrence: US)
  Receive Date: 20210510
  Receipt Date: 20211125
  Transmission Date: 20220303
  Serious: No
  Sender: FDA-Public Use
  Company Number: US-SA-SAC20210506000321

PATIENT
  Sex: Female

DRUGS (11)
  1. DUPIXENT [Suspect]
     Active Substance: DUPILUMAB
     Indication: Dermatitis atopic
     Dosage: 300 MG, QOW
     Route: 058
  2. PFIZER-BIONTECH COVID-19 VACCINE [Suspect]
     Active Substance: TOZINAMERAN
     Dosage: UNK
  3. METHOCARBAMOL [Concomitant]
     Active Substance: METHOCARBAMOL
  4. MOTRIN IB [Concomitant]
     Active Substance: IBUPROFEN
  5. IMITREX [Concomitant]
     Active Substance: SUMATRIPTAN SUCCINATE
  6. BOTOX [Concomitant]
     Active Substance: ONABOTULINUMTOXINA
  7. MINOCYCLINE HYDROCHLORIDE [Concomitant]
     Active Substance: MINOCYCLINE HYDROCHLORIDE
     Dosage: UNK MG
  8. BACITRACIN ZINC [Concomitant]
     Active Substance: BACITRACIN ZINC
  9. ALLEGRA ALLERGY [Concomitant]
     Active Substance: FEXOFENADINE HYDROCHLORIDE
     Dosage: 180 MG
  10. HYDROCORTISONE [Concomitant]
     Active Substance: HYDROCORTISONE
  11. VISINE [TETRYZOLINE HYDROCHLORIDE] [Concomitant]

REACTIONS (6)
  - Migraine [Unknown]
  - Vomiting [Unknown]
  - Cyst [Unknown]
  - Neck pain [Unknown]
  - Ocular hyperaemia [Unknown]
  - Eye discharge [Unknown]

NARRATIVE: CASE EVENT DATE: 20210101
